FAERS Safety Report 23191320 (Version 1)
Quarter: 2023Q4

REPORT INFORMATION
  Report Type: Spontaneous
  Country: FR (occurrence: FR)
  Receive Date: 20231116
  Receipt Date: 20231116
  Transmission Date: 20240110
  Serious: Yes (Other)
  Sender: FDA-Public Use
  Company Number: FR-SUN PHARMACEUTICAL INDUSTRIES LTD-2023RR-418293

PATIENT
  Sex: Male

DRUGS (2)
  1. PAROXETINE [Suspect]
     Active Substance: PAROXETINE
     Indication: Product used for unknown indication
     Dosage: PRESCRIBED: 40MG/DAY CONSUMED: 120 TO 160 MG/DAY
     Route: 048
  2. VALIUM [Suspect]
     Active Substance: DIAZEPAM
     Indication: Product used for unknown indication
     Dosage: PRESCRIBED: 3 CPS/DAY CONSUMED: 9 TO 12 CPS/D (90 TO 120 MG/D)
     Route: 048

REACTIONS (2)
  - Overdose [Not Recovered/Not Resolved]
  - Drug use disorder [Not Recovered/Not Resolved]
